FAERS Safety Report 25761240 (Version 1)
Quarter: 2025Q3

REPORT INFORMATION
  Report Type: Spontaneous
  Country: US (occurrence: None)
  Receive Date: 20250904
  Receipt Date: 20250904
  Transmission Date: 20251020
  Serious: No
  Sender: FDA-CTU
  Company Number: None

PATIENT
  Age: 62 Year
  Sex: Female
  Weight: 60 kg

DRUGS (1)
  1. SEVELAMER CARBONATE [Suspect]
     Active Substance: SEVELAMER CARBONATE
     Indication: Phosphorus metabolism disorder
     Dosage: 1600 MG TID  ORAL ?
     Route: 048
     Dates: start: 20250701, end: 20250808

REACTIONS (1)
  - Acquired amegakaryocytic thrombocytopenia [None]
